FAERS Safety Report 8241795-9 (Version None)
Quarter: 2012Q1

REPORT INFORMATION
  Report Type: 
  Country: None (occurrence: None)
  Receive Date: 20120328
  Receipt Date: 20120315
  Transmission Date: 20120608
  Serious: Yes (Other)
  Sender: FDA-Public Use
  Company Number: FR-ASTRAZENECA-2012SE12688

PATIENT
  Age: 43 Year
  Sex: Female
  Weight: 85 kg

DRUGS (2)
  1. QUETIAPINE FUMARATE [Suspect]
     Indication: BIPOLAR I DISORDER
     Dosage: DOSE WAS PROGRESSIVELY INCREASED TO 300 MG PER DAY ON DAY 3
     Route: 048
     Dates: start: 20120210, end: 20120213
  2. FLUTICASONE PROPIONATE/SALMETEROL [Concomitant]
     Indication: BRONCHOPNEUMOPATHY

REACTIONS (1)
  - GENERALISED OEDEMA [None]
